APPROVED DRUG PRODUCT: TECHNETIUM TC99M MERTIATIDE KIT
Active Ingredient: TECHNETIUM TC-99M MERTIATIDE KIT
Strength: N/A
Dosage Form/Route: INJECTABLE;INJECTION
Application: A208994 | Product #001 | TE Code: AP
Applicant: SUN PHARMACEUTICAL INDUSTRIES INC
Approved: Jul 12, 2019 | RLD: No | RS: No | Type: RX